FAERS Safety Report 8338867-7 (Version None)
Quarter: 2012Q2

REPORT INFORMATION
  Report Type: 
  Country: None (occurrence: None)
  Receive Date: 20120504
  Receipt Date: 20120424
  Transmission Date: 20120825
  Serious: Yes (Hospitalization)
  Sender: FDA-Public Use
  Company Number: BE-BRISTOL-MYERS SQUIBB COMPANY-16350878

PATIENT
  Age: 55 Year
  Sex: Female

DRUGS (7)
  1. GLUCOPHAGE [Concomitant]
  2. METFORMIN HCL [Suspect]
     Dosage: METFORMAX 850 UNITS NOS
  3. DORMONOCT [Concomitant]
     Dates: start: 20110803, end: 20110809
  4. EFFEXOR [Suspect]
     Dosage: 1 TAB OF EFEXOR EXEL 150MG ON 3AUG11 2 TABS FROM 12AUG11 300MG
     Dates: start: 20110803
  5. ABILIFY [Suspect]
     Indication: MAJOR DEPRESSION
     Dosage: 10MG:3AUG2011 20MG:9AUG2011 30MG:12AUG2011
     Route: 048
  6. STAURODORM NEU [Concomitant]
     Dates: start: 20110810
  7. LORAZEPAM [Concomitant]

REACTIONS (6)
  - LACTIC ACIDOSIS [None]
  - RENAL FAILURE [None]
  - OVERDOSE [None]
  - DEHYDRATION [None]
  - HEPATIC STEATOSIS [None]
  - SEROTONIN SYNDROME [None]
